FAERS Safety Report 15237427 (Version 1)
Quarter: 2018Q3

REPORT INFORMATION
  Report Type: Report from Study
  Country: US (occurrence: US)
  Receive Date: 20180803
  Receipt Date: 20180803
  Transmission Date: 20181010
  Serious: Yes (Hospitalization)
  Sender: FDA-Public Use
  Company Number: US-JNJFOC-20180801919

PATIENT
  Age: 80 Year
  Sex: Female

DRUGS (27)
  1. ATORVASTATIN [Concomitant]
     Active Substance: ATORVASTATIN
  2. TRIAMCINOLONE [Concomitant]
     Active Substance: TRIAMCINOLONE
  3. MELOXICAM. [Concomitant]
     Active Substance: MELOXICAM
  4. HYDROCODONE BITARTRATE W/PARACETAMOL [Concomitant]
     Active Substance: ACETAMINOPHEN\HYDROCODONE BITARTRATE
  5. QUINAPRIL. [Concomitant]
     Active Substance: QUINAPRIL
  6. FLUOCINONIDE. [Concomitant]
     Active Substance: FLUOCINONIDE
  7. KETOCONAZOLE. [Concomitant]
     Active Substance: KETOCONAZOLE
  8. JANUVIA [Concomitant]
     Active Substance: SITAGLIPTIN PHOSPHATE
  9. METOPROLOL. [Concomitant]
     Active Substance: METOPROLOL
  10. CHOLESTYRAMINE. [Concomitant]
     Active Substance: CHOLESTYRAMINE
  11. ALEVE [Concomitant]
     Active Substance: NAPROXEN SODIUM
  12. ULTRACET [Concomitant]
     Active Substance: ACETAMINOPHEN\TRAMADOL HYDROCHLORIDE
  13. MECLIZINE [Concomitant]
     Active Substance: MECLIZINE HYDROCHLORIDE
  14. ALLOPURINOL. [Concomitant]
     Active Substance: ALLOPURINOL
  15. SULFAMETHOXAZOLE W/TRIMETHOPRIM [Concomitant]
     Active Substance: SULFAMETHOXAZOLE\TRIMETHOPRIM
  16. LOMOTIL [Concomitant]
     Active Substance: ATROPINE SULFATE\DIPHENOXYLATE HYDROCHLORIDE
  17. IMBRUVICA [Suspect]
     Active Substance: IBRUTINIB
     Indication: CHRONIC LYMPHOCYTIC LEUKAEMIA
     Route: 048
     Dates: start: 20180524, end: 20180725
  18. AMLODIPINE [Concomitant]
     Active Substance: AMLODIPINE BESYLATE
  19. HYDROMORPHONE [Concomitant]
     Active Substance: HYDROMORPHONE
  20. ASPIRIN. [Concomitant]
     Active Substance: ASPIRIN
  21. CALCIUM [Concomitant]
     Active Substance: CALCIUM
  22. INCRUSE ELLIPTA [Concomitant]
     Active Substance: UMECLIDINIUM BROMIDE
  23. TYLENOL [Concomitant]
     Active Substance: ACETAMINOPHEN
  24. FISH OIL [Concomitant]
     Active Substance: FISH OIL
  25. MULTIVITAMINS [Concomitant]
     Active Substance: VITAMINS
  26. MOTRIN [Concomitant]
     Active Substance: IBUPROFEN
  27. DIPHENHYDRAMINE HYDROCHLORIDE. [Concomitant]
     Active Substance: DIPHENHYDRAMINE HYDROCHLORIDE

REACTIONS (1)
  - Cardiac failure congestive [Unknown]

NARRATIVE: CASE EVENT DATE: 20180720
